FAERS Safety Report 16217072 (Version 1)
Quarter: 2019Q2

REPORT INFORMATION
  Report Type: Spontaneous
  Country: US (occurrence: US)
  Receive Date: 20190316
  Receipt Date: 20190316
  Transmission Date: 20190711
  Serious: No
  Sender: FDA-Public Use
  Company Number: None

PATIENT
  Age: 42 Year
  Sex: Male

DRUGS (1)
  1. ENBREL [Suspect]
     Active Substance: ETANERCEPT
     Route: 058
     Dates: start: 20180313

REACTIONS (3)
  - Injection site haemorrhage [None]
  - Wrong technique in product usage process [None]
  - Memory impairment [None]

NARRATIVE: CASE EVENT DATE: 20190316
